FAERS Safety Report 15336003 (Version 8)
Quarter: 2019Q4

REPORT INFORMATION
  Report Type: Report from Study
  Country: RS (occurrence: RS)
  Receive Date: 20180830
  Receipt Date: 20191011
  Transmission Date: 20200122
  Serious: Yes (Life-Threatening, Hospitalization, Disabling)
  Sender: FDA-Public Use
  Company Number: RS-SHIRE-RS201826264

PATIENT

DRUGS (7)
  1. HUMAN IMMUNOGLOBULIN; HYALURONIDASE [Suspect]
     Active Substance: HUMAN IMMUNOGLOBULIN G\HYALURONIDASE RECOMBINANT HUMAN
     Indication: CHRONIC INFLAMMATORY DEMYELINATING POLYRADICULONEUROPATHY
     Dosage: 150 ML, EVERY 4 WK
     Route: 058
     Dates: start: 20180710, end: 20180710
  2. CARDIOPIRIN [Concomitant]
     Active Substance: ASPIRIN
     Indication: THROMBOSIS
  3. HUMAN IMMUNOGLOBULIN; HYALURONIDASE [Suspect]
     Active Substance: HUMAN IMMUNOGLOBULIN G\HYALURONIDASE RECOMBINANT HUMAN
     Dosage: 150 ML, EVERY 4 WK
     Route: 058
     Dates: start: 20180710, end: 20180710
  4. HUMAN IMMUNOGLOBULIN; HYALURONIDASE [Suspect]
     Active Substance: HUMAN IMMUNOGLOBULIN G\HYALURONIDASE RECOMBINANT HUMAN
     Dosage: 150 ML, EVERY 4 WK
     Route: 058
     Dates: end: 20180717
  5. LEVOXA [Concomitant]
     Active Substance: LEVOFLOXACIN
     Indication: URINARY TRACT INFECTION
  6. KEPPRA [Concomitant]
     Active Substance: LEVETIRACETAM
     Indication: ALTERED STATE OF CONSCIOUSNESS
  7. LAMICTAL [Concomitant]
     Active Substance: LAMOTRIGINE
     Indication: ALTERED STATE OF CONSCIOUSNESS

REACTIONS (1)
  - Cerebrovascular accident [Recovered/Resolved]

NARRATIVE: CASE EVENT DATE: 20180712
